FAERS Safety Report 7197768-0 (Version None)
Quarter: 2010Q4

REPORT INFORMATION
  Report Type: 
  Country: None (occurrence: None)
  Receive Date: 20101208
  Receipt Date: 20101123
  Transmission Date: 20110411
  Serious: Yes (Other)
  Sender: FDA-Public Use
  Company Number: 2010SP061923

PATIENT
  Age: 46 Year
  Sex: Female
  Weight: 65 kg

DRUGS (2)
  1. NUVARING [Suspect]
     Dosage: ;QM;VAG
     Route: 067
     Dates: start: 20100701, end: 20100701
  2. SERTRALINE [Concomitant]

REACTIONS (1)
  - SUICIDAL IDEATION [None]
